FAERS Safety Report 19205917 (Version 1)
Quarter: 2021Q2

REPORT INFORMATION
  Report Type: Spontaneous
  Country: US (occurrence: US)
  Receive Date: 20210503
  Receipt Date: 20210503
  Transmission Date: 20210717
  Serious: No
  Sender: FDA-Public Use
  Company Number: None

PATIENT
  Sex: Female

DRUGS (2)
  1. ENTYVIO [Suspect]
     Active Substance: VEDOLIZUMAB
  2. REMICADE [Suspect]
     Active Substance: INFLIXIMAB

REACTIONS (2)
  - Psoriasis [None]
  - Drug ineffective [None]
